FAERS Safety Report 4567223-2 (Version None)
Quarter: 2005Q1

REPORT INFORMATION
  Report Type: 
  Country: None (occurrence: None)
  Receive Date: 20050201
  Receipt Date: 20050118
  Transmission Date: 20050727
  Serious: Yes (Other)
  Sender: FDA-Public Use
  Company Number: US-BRISTOL-MYERS SQUIBB COMPANY-12830006

PATIENT
  Sex: Female

DRUGS (2)
  1. ABILIFY [Suspect]
  2. WELLBUTRIN [Concomitant]

REACTIONS (1)
  - CATATONIA [None]
